FAERS Safety Report 4428866-X (Version None)
Quarter: 2004Q3

REPORT INFORMATION
  Report Type: 
  Country: None (occurrence: None)
  Receive Date: 20040813
  Receipt Date: 20040802
  Transmission Date: 20050211
  Serious: Yes (Hospitalization, Other)
  Sender: FDA-Public Use
  Company Number: HQWYE100809AUG04

PATIENT
  Age: 69 Year
  Sex: Female

DRUGS (4)
  1. EFFEXOR [Suspect]
     Indication: DEPRESSION
     Dosage: INCREASED TO 150 MG DAILY
  2. EFFEXOR [Suspect]
     Indication: PSEUDODEMENTIA
     Dosage: INCREASED TO 150 MG DAILY
  3. DIAZEPAM [Concomitant]
  4. ANTIHYPERTENSIVE AGENT (ANTIHYPERTENSIVE AGENT) [Concomitant]

REACTIONS (12)
  - AGITATION [None]
  - BLUNTED AFFECT [None]
  - CEREBRAL ATROPHY [None]
  - DELUSION [None]
  - DISEASE PROGRESSION [None]
  - DISORIENTATION [None]
  - DISTURBANCE IN ATTENTION [None]
  - DRUG INEFFECTIVE [None]
  - ELECTROENCEPHALOGRAM ABNORMAL [None]
  - GENERAL PHYSICAL HEALTH DETERIORATION [None]
  - MEMORY IMPAIRMENT [None]
  - SOCIAL AVOIDANT BEHAVIOUR [None]
